FAERS Safety Report 5376019-3 (Version None)
Quarter: 2007Q2

REPORT INFORMATION
  Report Type: 
  Country: None (occurrence: None)
  Receive Date: 20070627
  Receipt Date: 20070627
  Transmission Date: 20071010
  Serious: No
  Sender: FDA-Public Use
  Company Number: None

PATIENT
  Sex: Female

DRUGS (3)
  1. SINGULAIR [Suspect]
     Indication: RHINITIS ALLERGIC
     Dosage: 10MG QD PO
     Route: 048
     Dates: start: 20070221, end: 20070617
  2. CLARINEX D-24 [Concomitant]
  3. NASONEX [Concomitant]

REACTIONS (1)
  - PARAESTHESIA [None]
